FAERS Safety Report 18907279 (Version 1)
Quarter: 2021Q1

REPORT INFORMATION
  Report Type: Spontaneous
  Country: US (occurrence: US)
  Receive Date: 20210218
  Receipt Date: 20210218
  Transmission Date: 20210420
  Serious: No
  Sender: FDA-Public Use
  Company Number: US-CIPLA LTD.-2021US00180

PATIENT

DRUGS (2)
  1. DICLOFENAC [Suspect]
     Active Substance: DICLOFENAC
     Dosage: 1 GRAM, BID (2 TIMES A DAY) FOR SHOULDER
     Route: 061
  2. DICLOFENAC [Suspect]
     Active Substance: DICLOFENAC
     Indication: ARTHRITIS
     Dosage: 4 GRAM, BID (TWICE A DAY) FOR KNEES
     Route: 061

REACTIONS (6)
  - Product use in unapproved indication [Unknown]
  - Off label use [Unknown]
  - Back pain [Recovering/Resolving]
  - Movement disorder [Unknown]
  - Muscle disorder [Unknown]
  - Pain [Unknown]
